FAERS Safety Report 10844409 (Version 1)
Quarter: 2015Q1

REPORT INFORMATION
  Report Type: Spontaneous
  Country: US (occurrence: US)
  Receive Date: 20150220
  Receipt Date: 20150220
  Transmission Date: 20150721
  Serious: Yes (Other)
  Sender: FDA-Public Use
  Company Number: US-BAXTER-2015BAX009157

PATIENT
  Age: 29 Week
  Sex: Male

DRUGS (6)
  1. 70% DEXTROSE INJECTION, USP [Suspect]
     Active Substance: DEXTROSE
     Indication: BLOOD GLUCOSE DECREASED
     Route: 065
  2. EPINEPHRINE. [Suspect]
     Active Substance: EPINEPHRINE
     Indication: PRODUCT USED FOR UNKNOWN INDICATION
     Route: 065
  3. 0.9% SODIUM CHLORIDE INJECTION [Suspect]
     Active Substance: SODIUM CHLORIDE
     Indication: HYPOTENSION
     Route: 065
  4. DOPAMINE HYDROCHLORIDE AND DEXTROSE [Suspect]
     Active Substance: DOPAMINE HYDROCHLORIDE
     Indication: HYPOTENSION
     Route: 065
  5. DOBUTAMINE HYDROCHLORIDE IN DEXTROSE [Suspect]
     Active Substance: DEXTROSE MONOHYDRATE\DEXTROSE MONOHYDRATE\DOBUTAMINE HYDROCHLORIDE\DOBUTAMINE HYDROCHLORIDE
     Indication: HEART RATE INCREASED
     Route: 065
  6. DOBUTAMINE HYDROCHLORIDE IN DEXTROSE [Suspect]
     Active Substance: DEXTROSE MONOHYDRATE\DEXTROSE MONOHYDRATE\DOBUTAMINE HYDROCHLORIDE\DOBUTAMINE HYDROCHLORIDE
     Indication: HYPOTENSION

REACTIONS (5)
  - Renal failure [Recovered/Resolved]
  - Heart rate increased [Recovered/Resolved]
  - Hypotension [Recovered/Resolved]
  - Hypoxia [Recovered/Resolved]
  - Cerebral ventricle dilatation [Unknown]
